FAERS Safety Report 22101415 (Version 1)
Quarter: 2023Q1

REPORT INFORMATION
  Report Type: Report from Study
  Country: BR (occurrence: BR)
  Receive Date: 20230316
  Receipt Date: 20230316
  Transmission Date: 20230418
  Serious: Yes (Hospitalization)
  Sender: FDA-Public Use
  Company Number: BR-JNJFOC-20230324954

PATIENT
  Age: 80 Year
  Sex: Female
  Weight: 66 kg

DRUGS (2)
  1. SIMPONI [Suspect]
     Active Substance: GOLIMUMAB
     Indication: Rheumatoid arthritis
     Route: 058
  2. SIMPONI [Suspect]
     Active Substance: GOLIMUMAB

REACTIONS (3)
  - Cystitis [Recovering/Resolving]
  - Pneumonia [Recovering/Resolving]
  - Blood pressure fluctuation [Unknown]
